FAERS Safety Report 9066950 (Version 2)
Quarter: 2013Q1

REPORT INFORMATION
  Report Type: Spontaneous
  Country: US (occurrence: US)
  Receive Date: 20130214
  Receipt Date: 20130312
  Transmission Date: 20140127
  Serious: Yes (Death)
  Sender: FDA-Public Use
  Company Number: CHPA2012US026270

PATIENT
  Age: 60 Year
  Sex: Male

DRUGS (1)
  1. 4 WAY SALINE MOISTURIZING MIST [Suspect]
     Dosage: UNK, UNK

REACTIONS (2)
  - Death [Fatal]
  - Drug ineffective [Unknown]
